FAERS Safety Report 4356933-8 (Version None)
Quarter: 2004Q2

REPORT INFORMATION
  Report Type: 
  Country: None (occurrence: None)
  Receive Date: 20040507
  Receipt Date: 20040414
  Transmission Date: 20050107
  Serious: Yes (Other)
  Sender: FDA-Public Use
  Company Number: USA030945904

PATIENT
  Age: 81 Year
  Sex: Female
  Weight: 57 kg

DRUGS (8)
  1. FORTEO [Suspect]
     Indication: OSTEOPOROSIS
     Dosage: 20 UG DAY
     Dates: start: 20030501
  2. EVISTA [Suspect]
  3. ALPHAGAN [Concomitant]
  4. LUMIGAN (BIRMATOPROST) [Concomitant]
  5. ANTIHISTAMINE [Concomitant]
  6. CALCIUM [Concomitant]
  7. BEXTRA [Concomitant]
  8. BIAXIN [Concomitant]

REACTIONS (9)
  - DRUG INEFFECTIVE [None]
  - HEADACHE [None]
  - INJECTION SITE HAEMORRHAGE [None]
  - INJECTION SITE PAIN [None]
  - INTERVERTEBRAL DISC DISORDER [None]
  - INTERVERTEBRAL DISC PROTRUSION [None]
  - MUSCLE CRAMP [None]
  - PHARMACEUTICAL PRODUCT COMPLAINT [None]
  - SOMNOLENCE [None]
